FAERS Safety Report 18456890 (Version 1)
Quarter: 2020Q4

REPORT INFORMATION
  Report Type: Spontaneous
  Country: US (occurrence: US)
  Receive Date: 20201103
  Receipt Date: 20201103
  Transmission Date: 20210114
  Serious: No
  Sender: FDA-Public Use
  Company Number: US-TEVA-2020-US-1844985

PATIENT

DRUGS (1)
  1. BUPROPION XL ACTAVIS [Suspect]
     Active Substance: BUPROPION
     Dosage: APPROXIMATELY 3 MONTHS AGO
     Route: 065
     Dates: start: 2020, end: 2020

REACTIONS (4)
  - Disturbance in attention [Unknown]
  - Insomnia [Unknown]
  - Feeling abnormal [Unknown]
  - Depression [Unknown]

NARRATIVE: CASE EVENT DATE: 2020
